FAERS Safety Report 17493898 (Version 3)
Quarter: 2024Q3

REPORT INFORMATION
  Report Type: Report from Study
  Country: US (occurrence: US)
  Receive Date: 20200303
  Receipt Date: 20240905
  Transmission Date: 20241016
  Serious: Yes (Hospitalization, Other)
  Sender: AMNEAL
  Company Number: US-AMNEAL PHARMACEUTICALS-2019-IPXL-00619

PATIENT
  Sex: Male
  Weight: 105 kg

DRUGS (35)
  1. CARBIDOPA\LEVODOPA [Suspect]
     Active Substance: CARBIDOPA\LEVODOPA
     Indication: Parkinson^s disease
     Dosage: 2 CAPSULES, TID
     Route: 048
  2. CARBIDOPA\LEVODOPA [Suspect]
     Active Substance: CARBIDOPA\LEVODOPA
     Dosage: 3 CAPSULES, TID
     Route: 048
     Dates: start: 20200205
  3. CARBIDOPA\LEVODOPA [Suspect]
     Active Substance: CARBIDOPA\LEVODOPA
     Dosage: RYTARY 95, 3.5 CAPSULES TID
     Route: 065
     Dates: start: 202008
  4. CARBIDOPA\LEVODOPA [Suspect]
     Active Substance: CARBIDOPA\LEVODOPA
     Dosage: RYTARY 145 MG, 3 CAPS TID
     Route: 065
     Dates: start: 202105
  5. CARBIDOPA\LEVODOPA [Suspect]
     Active Substance: CARBIDOPA\LEVODOPA
     Dosage: RYTARY DOSE INCREASE TO Q6 HOURS
     Route: 065
     Dates: start: 202202
  6. CARBIDOPA\LEVODOPA [Suspect]
     Active Substance: CARBIDOPA\LEVODOPA
     Dosage: 3 CAPSULES (245 MG), TID
     Route: 065
  7. CARBIDOPA\LEVODOPA [Suspect]
     Active Substance: CARBIDOPA\LEVODOPA
     Dosage: 5/5/4/4
  8. CARBIDOPA\LEVODOPA [Suspect]
     Active Substance: CARBIDOPA\LEVODOPA
     Dosage: 4 CAPSULES (145 MG), TID
     Route: 065
  9. CARBIDOPA\LEVODOPA [Suspect]
     Active Substance: CARBIDOPA\LEVODOPA
     Dosage: 23.75-95MG TAKE 3 CAPSULES BY MOUTH THREE TIMES A DAY
     Route: 048
  10. CARBIDOPA\LEVODOPA [Suspect]
     Active Substance: CARBIDOPA\LEVODOPA
     Dosage: 3 CAPSULES, 3 /DAY (61.25-245MG TAKE 3 CAPSULES BY MOUTH IN THE CAPSULES BY MOUTH IN THE EVENING, AN
     Route: 048
     Dates: start: 20230809
  11. CARBIDOPA\LEVODOPA [Suspect]
     Active Substance: CARBIDOPA\LEVODOPA
     Dosage: 3 CAPSULES (23.75-95 MG), TID
     Route: 048
  12. CARBIDOPA\LEVODOPA [Suspect]
     Active Substance: CARBIDOPA\LEVODOPA
     Dosage: 23.75-95MG 1 CAPSULE BY MOUTH AT BEDTIME ALONG WITH RYTARY 61.25- 245MG 3 CAPS IN THE MORNING, 3 CAP
     Route: 048
     Dates: start: 20230814
  13. CARBIDOPA\LEVODOPA [Suspect]
     Active Substance: CARBIDOPA\LEVODOPA
     Dosage: 61.25-245MG CAP, TAKE 3 CAPSULES BY MOUTH EVERY MORNING, 3 CAPSULES BY MOUTH EVERY EVENING, AND 2 CA
     Route: 048
  14. CARBIDOPA\LEVODOPA [Suspect]
     Active Substance: CARBIDOPA\LEVODOPA
     Dosage: 61.25-245MG CAPSULE TAKE 3 CAPSULES BY MOUTH DAILY AT 7AM, TAKE 3 CAPSULES BY MOUTH AT 1PM, TAKE 3 C
     Route: 048
     Dates: start: 20231009
  15. CARBIDOPA\LEVODOPA [Suspect]
     Active Substance: CARBIDOPA\LEVODOPA
     Dosage: 23.75-95MG TAKE 3 CAPSULES BY MOUTH THREE TIMES DAILY
     Route: 048
  16. CARBIDOPA\LEVODOPA [Suspect]
     Active Substance: CARBIDOPA\LEVODOPA
     Dosage: 23.75-95MG 1 CAPSULE BY MOUTH ALONG WITH RYTARY 61.25-245MG 3 CAPS IN THE MORNING, 3 CAPS IN THE EVE
     Route: 048
     Dates: start: 20230814
  17. CARBIDOPA\LEVODOPA [Suspect]
     Active Substance: CARBIDOPA\LEVODOPA
     Dosage: RYTARY 245 MG CAP 3/3/2/2 AND ADD 95 MG CAP FOR 3RD AND 4TH DOSES
     Route: 065
  18. CARBIDOPA\LEVODOPA [Suspect]
     Active Substance: CARBIDOPA\LEVODOPA
     Dosage: 2 CAPSULES (245 MG), TID
  19. MIRAPEX [Suspect]
     Active Substance: PRAMIPEXOLE DIHYDROCHLORIDE
     Indication: Product used for unknown indication
     Dosage: 1 MG TID
     Route: 065
  20. MIRAPEX [Suspect]
     Active Substance: PRAMIPEXOLE DIHYDROCHLORIDE
     Dosage: 0.75 MILLIGRAM, TID
     Route: 065
  21. MIRAPEX [Suspect]
     Active Substance: PRAMIPEXOLE DIHYDROCHLORIDE
     Dosage: LOWER DOSE 0.5 MG TID
     Route: 065
     Dates: start: 20240228
  22. NORVASC [Concomitant]
     Active Substance: AMLODIPINE BESYLATE
     Indication: Blood pressure abnormal
     Dosage: (10 MILLIGRAM) 1 TABLETS, QD
     Route: 048
     Dates: start: 20240311
  23. ASPIRIN [Concomitant]
     Active Substance: ASPIRIN
     Indication: Product used for unknown indication
     Dosage: 81 MG 1 TABLETS, QD (MORNING)
     Route: 048
     Dates: start: 20210120
  24. LIPITOR [Concomitant]
     Active Substance: ATORVASTATIN CALCIUM
     Indication: Product used for unknown indication
     Dosage: 40 MG 1 TABLETS, QD (TAKE ONE TABLET BY MOUTH AT BEDTIME)
     Route: 048
     Dates: start: 20240311
  25. COREG [Concomitant]
     Active Substance: CARVEDILOL
     Indication: Product used for unknown indication
     Dosage: 25 MG 1 TABLETS, BID (TAKE ONE TABLET BY MOUTH EVERY MORNING AND 1 TABLET EVERY EVENING. TAKE WITH M
     Route: 048
     Dates: start: 20240311
  26. PLAVIX [Concomitant]
     Active Substance: CLOPIDOGREL BISULFATE
     Indication: Product used for unknown indication
     Dosage: 75 MG 1 TABLETS, QD (TAKE 1 TABLET (75 MG TOTAL) BY MOUTH ONCE DAILY.)
     Route: 048
     Dates: start: 20240228
  27. JARDIANCE [Concomitant]
     Active Substance: EMPAGLIFLOZIN
     Indication: Product used for unknown indication
     Dosage: 25 MG 1 TABLETS, QD (TAKE 1 TABLET (25 MG TOTAL) BY MOUTH ONCE DAILY)
     Route: 048
     Dates: start: 20240228
  28. FLONASE [Concomitant]
     Active Substance: FLUTICASONE PROPIONATE
     Indication: Product used for unknown indication
     Dosage: 50 MCG/SPRAY NASAL, ADMINISTER 2 SPRAYS INTO EACH NOSTRIL ONCE DAILY - EACH NOSTRIL
     Route: 045
     Dates: start: 20240228
  29. GLUCOTROL [Concomitant]
     Active Substance: GLIPIZIDE
     Indication: Blood glucose abnormal
     Dosage: 5 MG 1 TABLETS, QD (TAKE ONE TABLET BY MOUTH EVERY DAY FOR SUGAR CONTROL)
     Route: 048
     Dates: start: 20240311
  30. LEVEMIR [Concomitant]
     Active Substance: INSULIN DETEMIR
     Indication: Product used for unknown indication
     Dosage: 100 UNIT/ML INJECTION, INJECT 20 UNITS UNDER THE SKIN AT BEDTIME SUBCUTANEOUS
     Route: 058
  31. IMDUR [Concomitant]
     Active Substance: ISOSORBIDE MONONITRATE
     Indication: Product used for unknown indication
     Dosage: 60 MG 1 TABLETS, QD (TAKE ONE TABLET BY MOUTH EVERY DAY)
     Route: 048
     Dates: start: 20240311
  32. VICTOZA [Concomitant]
     Active Substance: LIRAGLUTIDE
     Indication: Product used for unknown indication
     Dosage: 0.6 MG/0.1 ML (18 MG/3 ML), INJECTION 0.1 ML (0.6 MG TOTAL) UNDER THE SKIN DAILY FOR 30 DAYS, THEN 0
     Route: 058
     Dates: start: 20230113, end: 20240202
  33. PRINIVIL [Concomitant]
     Active Substance: LISINOPRIL
     Indication: Blood pressure abnormal
     Dosage: 20 MG 1 TABLETS, BID (TAKE 1 TABLET (20 MG TOTAL) BY MOUTH 2 (TWO) TIMES A DAY)
     Route: 048
     Dates: start: 20240228
  34. NITROSTAT [Concomitant]
     Active Substance: NITROGLYCERIN
     Indication: Product used for unknown indication
     Dosage: PLACE 1 TABLET (0.4 MG TOTAL) UNDER THE TONGUE EVERY 5 (FIVE) MINS AS NEEDED FOR CHEST PAIN FOR UP T
     Route: 060
     Dates: start: 20231202
  35. ALDACTONE [Concomitant]
     Active Substance: SPIRONOLACTONE
     Indication: Product used for unknown indication
     Dosage: 25 MILLIGRAM, QD (TAKE 25 MG BY MOUTH)
     Route: 048

REACTIONS (13)
  - Intestinal ischaemia [Unknown]
  - Hallucination [Recovering/Resolving]
  - Weight decreased [Unknown]
  - Freezing phenomenon [Recovering/Resolving]
  - Bradykinesia [Recovering/Resolving]
  - On and off phenomenon [Recovering/Resolving]
  - Hypoaesthesia [Unknown]
  - Fatigue [Unknown]
  - Intentional product use issue [Unknown]
  - Therapy cessation [Unknown]
  - Somnolence [Unknown]
  - Headache [Recovering/Resolving]
  - Nausea [Unknown]
